FAERS Safety Report 11609532 (Version 1)
Quarter: 2015Q3

REPORT INFORMATION
  Report Type: Spontaneous
  Country: US (occurrence: US)
  Receive Date: 20150916
  Receipt Date: 20150916
  Transmission Date: 20151125
  Serious: No
  Sender: FDA-Public Use
  Company Number: US-ELI_LILLY_AND_COMPANY-US201309009943

PATIENT
  Age: 59 Year
  Sex: Female

DRUGS (1)
  1. HUMALOG [Suspect]
     Active Substance: INSULIN LISPRO
     Indication: TYPE 2 DIABETES MELLITUS
     Dosage: UNK
     Route: 065

REACTIONS (5)
  - Tinnitus [Unknown]
  - Malaise [Unknown]
  - Blood glucose decreased [Recovered/Resolved]
  - Palpitations [Unknown]
  - Schizophrenia [Unknown]

NARRATIVE: CASE EVENT DATE: 20130924
